FAERS Safety Report 9338975 (Version 1)
Quarter: 2013Q2

REPORT INFORMATION
  Report Type: Spontaneous
  Country: GB (occurrence: GB)
  Receive Date: 20130610
  Receipt Date: 20130610
  Transmission Date: 20140414
  Serious: Yes (Other)
  Sender: FDA-Public Use
  Company Number: PHHY2013GB056729

PATIENT
  Age: 50 Year
  Sex: Male

DRUGS (1)
  1. 5-FLUOROURACIL [Suspect]
     Indication: CORNEAL OPERATION
     Route: 057

REACTIONS (1)
  - Corneal disorder [Not Recovered/Not Resolved]
